FAERS Safety Report 10749886 (Version 1)
Quarter: 2015Q1

REPORT INFORMATION
  Report Type: Spontaneous
  Country: US (occurrence: US)
  Receive Date: 20150129
  Receipt Date: 20150129
  Transmission Date: 20150721
  Serious: No
  Sender: FDA-Public Use
  Company Number: US-GLAXOSMITHKLINE-US2014GSK048487

PATIENT
  Sex: Female

DRUGS (6)
  1. LAMOTRIGINE. [Suspect]
     Active Substance: LAMOTRIGINE
     Indication: SEIZURE
     Dosage: UNK, U
  2. PHENOBARBITAL. [Concomitant]
     Active Substance: PHENOBARBITAL
  3. NOVOLOG [Concomitant]
     Active Substance: INSULIN ASPART
  4. COUMADIN [Concomitant]
     Active Substance: WARFARIN SODIUM
  5. DILANTIN [Concomitant]
     Active Substance: PHENYTOIN
  6. LANTUS [Concomitant]
     Active Substance: INSULIN GLARGINE

REACTIONS (1)
  - Drug ineffective [Unknown]
